FAERS Safety Report 8443637-5 (Version None)
Quarter: 2012Q2

REPORT INFORMATION
  Report Type: 
  Country: None (occurrence: None)
  Receive Date: 20120618
  Receipt Date: 20120608
  Transmission Date: 20120825
  Serious: Yes (Hospitalization, Other)
  Sender: FDA-Public Use
  Company Number: US-JNJFOC-20120605004

PATIENT
  Sex: Female
  Weight: 97.98 kg

DRUGS (2)
  1. LEVOTHYROXINE SODIUM [Concomitant]
     Indication: HYPOTHYROIDISM
     Route: 048
  2. REMICADE [Suspect]
     Indication: RHEUMATOID ARTHRITIS
     Route: 042
     Dates: start: 20050101

REACTIONS (5)
  - ARTHRITIS [None]
  - HYPOTHYROIDISM [None]
  - EYE DEGENERATIVE DISORDER [None]
  - KNEE ARTHROPLASTY [None]
  - WEIGHT INCREASED [None]
